FAERS Safety Report 5344129-2 (Version None)
Quarter: 2007Q2

REPORT INFORMATION
  Report Type: 
  Country: None (occurrence: None)
  Receive Date: 20070531
  Receipt Date: 20070531
  Transmission Date: 20071010
  Serious: Yes (Disabling, Congenital Anomaly)
  Sender: FDA-Public Use
  Company Number: None

PATIENT
  Age: 39 Year
  Sex: Female
  Weight: 73.4827 kg

DRUGS (2)
  1. TUSSIN CF OC EQUATE [Suspect]
     Indication: COUGH
     Dosage: 2 TSP EVERY 4-6 HOURS PO
     Route: 048
     Dates: start: 20070120, end: 20070317
  2. TUSSIN CF OC EQUATE [Suspect]
     Indication: NASOPHARYNGITIS
     Dosage: 2 TSP EVERY 4-6 HOURS PO
     Route: 048
     Dates: start: 20070120, end: 20070317

REACTIONS (2)
  - DRUG EXPOSURE DURING PREGNANCY [None]
  - PREMATURE BABY [None]
